FAERS Safety Report 15675554 (Version 5)
Quarter: 2019Q1

REPORT INFORMATION
  Report Type: Report from Study
  Country: JP (occurrence: JP)
  Receive Date: 20181130
  Receipt Date: 20190315
  Transmission Date: 20190417
  Serious: Yes (Life-Threatening, Hospitalization)
  Sender: FDA-Public Use
  Company Number: JP-ACTELION-A-CH2018-182288

PATIENT
  Age: 81 Year
  Sex: Female
  Weight: 45.1 kg

DRUGS (12)
  1. LIXIANA [Suspect]
     Active Substance: EDOXABAN TOSYLATE
     Indication: PULMONARY HYPERTENSION
     Dosage: 30 MG, QD
     Route: 048
     Dates: start: 20170403, end: 20180911
  2. RESPLEN [Concomitant]
     Active Substance: EPRAZINONE
  3. CARBOCISTEINE [Concomitant]
     Active Substance: CARBOCYSTEINE
     Indication: BRONCHITIS CHRONIC
     Dosage: 1500 MG, UNK
  4. MEDICON [Concomitant]
     Active Substance: DEXTROMETHORPHAN HYDROBROMIDE
     Indication: BRONCHITIS CHRONIC
     Dosage: 45 MG, UNK
  5. ADEMPAS [Concomitant]
     Active Substance: RIOCIGUAT
     Indication: PULMONARY HYPERTENSION
     Dosage: 7.5 MG, UNK
  6. OPSUMIT [Suspect]
     Active Substance: MACITENTAN
     Indication: PULMONARY HYPERTENSION
     Dosage: 10 MG, QD
     Route: 048
     Dates: start: 20171007
  7. UPTRAVI [Suspect]
     Active Substance: SELEXIPAG
     Indication: PULMONARY HYPERTENSION
     Dosage: 0.4 MG, BID
     Route: 048
     Dates: start: 20180220, end: 20180424
  8. LUNESTA [Concomitant]
     Active Substance: ESZOPICLONE
  9. OXYGEN. [Concomitant]
     Active Substance: OXYGEN
  10. LASIX [Concomitant]
     Active Substance: FUROSEMIDE
     Dosage: 20 MG, UNK
  11. MUCOSOLVAN [Concomitant]
     Active Substance: AMBROXOL HYDROCHLORIDE
     Indication: BRONCHITIS CHRONIC
     Dosage: 45 MG, UNK
  12. CODEINE PHOSPHATE [Concomitant]
     Active Substance: CODEINE PHOSPHATE

REACTIONS (11)
  - Constipation [Recovering/Resolving]
  - Wound [Recovering/Resolving]
  - Epistaxis [Recovering/Resolving]
  - Craniotomy [Unknown]
  - Anaemia [Recovering/Resolving]
  - Transfusion [Unknown]
  - Subdural haematoma [Recovering/Resolving]
  - Nasal operation [Unknown]
  - Asthma [Recovering/Resolving]
  - Headache [Recovering/Resolving]
  - Nausea [Recovering/Resolving]

NARRATIVE: CASE EVENT DATE: 20180220
